FAERS Safety Report 7440931-1 (Version None)
Quarter: 2011Q2

REPORT INFORMATION
  Report Type: 
  Country: None (occurrence: None)
  Receive Date: 20110427
  Receipt Date: 20110425
  Transmission Date: 20111010
  Serious: Yes (Death, Other)
  Sender: FDA-Public Use
  Company Number: PHHO2010AR18309

PATIENT
  Sex: Male

DRUGS (1)
  1. FTY [Suspect]
     Dosage: MATERNAL DOSE 0.5MG
     Route: 064

REACTIONS (2)
  - FOETAL MALFORMATION [None]
  - DRUG EXPOSURE DURING PREGNANCY [None]
